FAERS Safety Report 5220519-3 (Version None)
Quarter: 2007Q1

REPORT INFORMATION
  Report Type: 
  Country: None (occurrence: None)
  Receive Date: 20070125
  Receipt Date: 20070125
  Transmission Date: 20070707
  Serious: Yes (Hospitalization)
  Sender: FDA-Public Use
  Company Number: None

PATIENT
  Sex: Male
  Weight: 95.2554 kg

DRUGS (7)
  1. FENTANYL TRANSDERMAL SYSTEM [Suspect]
     Indication: PAIN MANAGEMENT
     Dosage: TOPICAL
     Route: 061
  2. FLOMAX [Concomitant]
  3. METOPROLOL TARTRATE [Concomitant]
  4. PROTONIX [Concomitant]
  5. LASIX [Concomitant]
  6. ALLOPURINOL SODIUM [Concomitant]
  7. DECADRON [Concomitant]

REACTIONS (1)
  - LOSS OF CONSCIOUSNESS [None]
